FAERS Safety Report 10065082 (Version 1)
Quarter: 2014Q2

REPORT INFORMATION
  Report Type: Spontaneous
  Country: US (occurrence: US)
  Receive Date: 20140408
  Receipt Date: 20140408
  Transmission Date: 20141212
  Serious: Yes (Hospitalization, Other)
  Sender: FDA-Public Use
  Company Number: US-GILEAD-2014-0098983

PATIENT
  Sex: Female

DRUGS (9)
  1. LETAIRIS [Suspect]
     Indication: PULMONARY HYPERTENSION
     Dosage: 5 MG, QD
     Route: 065
     Dates: start: 20131112
  2. BENICAR [Concomitant]
  3. PROAIR HFA [Concomitant]
  4. SPIRONOLACTONE [Concomitant]
  5. LACTOBACILLUS [Concomitant]
  6. ADVAIR [Concomitant]
  7. METOLAZONE [Concomitant]
  8. BUMETANIDE [Concomitant]
  9. ATORVASTATIN [Concomitant]

REACTIONS (5)
  - Pneumonia [Unknown]
  - Cardiac failure congestive [Unknown]
  - Fluid overload [Unknown]
  - Cough [Recovered/Resolved]
  - Dyspnoea [Recovered/Resolved]
